FAERS Safety Report 9354224 (Version 1)
Quarter: 2013Q2

REPORT INFORMATION
  Report Type: Spontaneous
  Country: ES (occurrence: None)
  Receive Date: 20130613
  Receipt Date: 20130613
  Transmission Date: 20140414
  Serious: Yes (Hospitalization)
  Sender: FDA-Public Use
  Company Number: 1745176

PATIENT
  Age: 51 Year
  Sex: Male

DRUGS (1)
  1. PACLITAXEL [Suspect]
     Indication: NON-SMALL CELL LUNG CANCER
     Dosage: INTRAVENOUS (NOT OTHERWISE SPECIFIED)
     Route: 042
     Dates: start: 20111229, end: 20111229

REACTIONS (6)
  - Choking sensation [None]
  - Dyspnoea [None]
  - Chest pain [None]
  - Nausea [None]
  - Vomiting [None]
  - Erythema [None]
